APPROVED DRUG PRODUCT: ACTHAR GEL (AUTOINJECTOR)
Active Ingredient: CORTICOTROPIN
Strength: 40 UNITS/0.5ML
Dosage Form/Route: INJECTABLE;INJECTION
Application: N008372 | Product #003
Applicant: MALLINCKRODT PHARMACEUTICALS IRELAND LTD
Approved: Feb 29, 2024 | RLD: Yes | RS: Yes | Type: RX

PATENTS:
Patent 11752199 | Expires: Jul 18, 2041
Patent 11752199 | Expires: Jul 18, 2041
Patent 11752199 | Expires: Jul 18, 2041